FAERS Safety Report 5597385-X (Version None)
Quarter: 2008Q1

REPORT INFORMATION
  Report Type: 
  Country: None (occurrence: None)
  Receive Date: 20080121
  Receipt Date: 20080107
  Transmission Date: 20080703
  Serious: Yes (Other)
  Sender: FDA-Public Use
  Company Number: BR-JNJFOC-20080101883

PATIENT
  Age: 35 Year
  Sex: Female
  Weight: 63 kg

DRUGS (2)
  1. PANTELMIN [Suspect]
     Indication: INFECTION PROPHYLAXIS
     Route: 048
  2. PURAN [Concomitant]
     Indication: THYROID DISORDER
     Route: 065

REACTIONS (4)
  - DYSPNOEA [None]
  - EYE SWELLING [None]
  - RHINITIS [None]
  - SWELLING FACE [None]
